FAERS Safety Report 20927875 (Version 1)
Quarter: 2022Q2

REPORT INFORMATION
  Report Type: Spontaneous
  Country: US (occurrence: US)
  Receive Date: 20220607
  Receipt Date: 20220607
  Transmission Date: 20220721
  Serious: No
  Sender: FDA-Public Use
  Company Number: US-PERRIGO-21US032683

PATIENT
  Age: 49 Year
  Sex: Male
  Weight: 79.365 kg

DRUGS (2)
  1. MINOXIDIL [Suspect]
     Active Substance: MINOXIDIL
     Indication: Alopecia
     Dosage: LESS THAN 0.5 CAPFUL, BID
     Route: 061
     Dates: start: 202011, end: 20211203
  2. ADVIL [Concomitant]
     Active Substance: IBUPROFEN
     Indication: Headache
     Dosage: UNK, PRN (RARE)
     Route: 065

REACTIONS (3)
  - Application site pruritus [Recovered/Resolved]
  - Therapeutic product effect decreased [Unknown]
  - Underdose [Recovered/Resolved]

NARRATIVE: CASE EVENT DATE: 20201101
